FAERS Safety Report 5026318-X (Version None)
Quarter: 2006Q2

REPORT INFORMATION
  Report Type: 
  Country: None (occurrence: None)
  Receive Date: 20060608
  Receipt Date: 20060530
  Transmission Date: 20061013
  Serious: Yes (Other)
  Sender: FDA-Public Use
  Company Number: 2005-10-0097

PATIENT
  Age: 71 Year
  Sex: Male

DRUGS (7)
  1. PEG-INTRON [Suspect]
     Indication: POLYCYTHAEMIA VERA
     Dosage: 50 MCG QWK SUBCUTANEOUS
     Route: 058
     Dates: start: 20050101
  2. BISOPROLOL COATED [Concomitant]
  3. ACETYLSALICYLIC ACID SRT [Concomitant]
  4. DECORTIN [Concomitant]
  5. PANTOPRAZOLE SODIUM [Concomitant]
  6. ALLOPURINOL [Concomitant]
  7. ALLOPURINOL [Concomitant]

REACTIONS (4)
  - INJECTION SITE ERYTHEMA [None]
  - SKIN CHAPPED [None]
  - SKIN HAEMORRHAGE [None]
  - STOMATITIS [None]
